FAERS Safety Report 6244507-3 (Version None)
Quarter: 2009Q2

REPORT INFORMATION
  Report Type: 
  Country: None (occurrence: None)
  Receive Date: 20090623
  Receipt Date: 20090623
  Transmission Date: 20091009
  Serious: No
  Sender: FDA-Public Use
  Company Number: None

PATIENT
  Age: 67 Year
  Sex: Female
  Weight: 70.3075 kg

DRUGS (1)
  1. ZICAM COLD REMEDY NASAL GEL ZICAM LLC [Suspect]
     Indication: NASOPHARYNGITIS
     Dates: start: 20070312, end: 20070313

REACTIONS (3)
  - ANOSMIA [None]
  - BURNING SENSATION [None]
  - HYPOGEUSIA [None]
